FAERS Safety Report 10674454 (Version 1)
Quarter: 2014Q4

REPORT INFORMATION
  Report Type: Spontaneous
  Country: FR (occurrence: None)
  Receive Date: 20141222
  Receipt Date: 20141222
  Transmission Date: 20150529
  Serious: Yes (Other)
  Sender: FDA-Public Use
  Company Number: FR-H14001-14-01814

PATIENT
  Age: 34 Year
  Sex: Male

DRUGS (4)
  1. CERUBIDINE [Suspect]
     Active Substance: DAUNORUBICIN HYDROCHLORIDE
     Indication: ACUTE LEUKAEMIA
     Dosage: 1 IN 1 D
     Route: 042
     Dates: start: 20080626, end: 20080628
  2. ARACYTINE [Suspect]
     Active Substance: CYTARABINE
     Indication: ACUTE LEUKAEMIA
     Dosage: 1 IN 1 D
     Route: 042
     Dates: start: 20080626, end: 20080702
  3. MYLOTARG [Suspect]
     Active Substance: GEMTUZUMAB OZOGAMICIN
     Indication: ACUTE LEUKAEMIA
     Dosage: 1 IN 1 D
     Route: 042
     Dates: start: 20080630, end: 20080630
  4. AMSALYO [Suspect]
     Active Substance: AMSACRINE
     Indication: ACUTE LEUKAEMIA
     Dosage: 1 IN 1 D
     Dates: start: 20080730, end: 20080801

REACTIONS (3)
  - Febrile bone marrow aplasia [None]
  - Thrombocytopenia [None]
  - Acute myeloid leukaemia [None]

NARRATIVE: CASE EVENT DATE: 20080630
